FAERS Safety Report 20772459 (Version 3)
Quarter: 2025Q1

REPORT INFORMATION
  Report Type: Spontaneous
  Country: US (occurrence: US)
  Receive Date: 20220502
  Receipt Date: 20250103
  Transmission Date: 20250409
  Serious: No
  Sender: SANOFI AVENTIS
  Company Number: US-SA-SAC20220428001073

PATIENT
  Age: 56 Year
  Sex: Female

DRUGS (1)
  1. DUPIXENT [Suspect]
     Active Substance: DUPILUMAB
     Indication: Dermatitis atopic
     Dosage: 300 MG, QOW
     Route: 058
     Dates: start: 201712

REACTIONS (6)
  - Inflammation [Unknown]
  - Lacrimation increased [Unknown]
  - Eye pain [Unknown]
  - Vision blurred [Unknown]
  - Pruritus [Unknown]
  - Eye pruritus [Unknown]
